FAERS Safety Report 19389088 (Version 1)
Quarter: 2021Q2

REPORT INFORMATION
  Report Type: Spontaneous
  Country: US (occurrence: US)
  Receive Date: 20210608
  Receipt Date: 20210608
  Transmission Date: 20210717
  Serious: Yes (Other)
  Sender: FDA-Public Use
  Company Number: None

PATIENT
  Age: 10 Year
  Sex: Male
  Weight: 31.75 kg

DRUGS (1)
  1. METHYLPHENIDATE  36MG [Suspect]
     Active Substance: METHYLPHENIDATE
     Indication: ATTENTION DEFICIT HYPERACTIVITY DISORDER
     Route: 048
     Dates: start: 20210524, end: 20210524

REACTIONS (3)
  - Product formulation issue [None]
  - Product substitution issue [None]
  - Irritability [None]

NARRATIVE: CASE EVENT DATE: 20210330
